FAERS Safety Report 13653186 (Version 1)
Quarter: 2017Q2

REPORT INFORMATION
  Report Type: Spontaneous
  Country: US (occurrence: US)
  Receive Date: 20170614
  Receipt Date: 20170614
  Transmission Date: 20170830
  Serious: No
  Sender: FDA-Public Use
  Company Number: US-ROCHE-1292943

PATIENT
  Sex: Female

DRUGS (2)
  1. XELODA [Suspect]
     Active Substance: CAPECITABINE
     Route: 048
     Dates: start: 20130920
  2. XELODA [Suspect]
     Active Substance: CAPECITABINE
     Indication: BREAST CANCER
     Route: 048

REACTIONS (6)
  - Skin discolouration [Unknown]
  - Pain in extremity [Unknown]
  - Erythema [Unknown]
  - Hyperaesthesia [Unknown]
  - Lacrimation increased [Unknown]
  - Skin hyperpigmentation [Unknown]
